FAERS Safety Report 11221456 (Version 2)
Quarter: 2015Q3

REPORT INFORMATION
  Report Type: Spontaneous
  Country: NL (occurrence: NL)
  Receive Date: 20150626
  Receipt Date: 20150709
  Transmission Date: 20151125
  Serious: Yes (Death, Hospitalization, Other)
  Sender: FDA-Public Use
  Company Number: NL-INCYTE CORPORATION-2015IN002904

PATIENT
  Age: 68 Year
  Sex: Male

DRUGS (3)
  1. INC424 [Suspect]
     Active Substance: RUXOLITINIB
     Indication: MYELOFIBROSIS
     Route: 065
  2. HYDROXYUREA. [Concomitant]
     Active Substance: HYDROXYUREA
     Indication: MYELOFIBROSIS
     Route: 065
  3. PREDNISONE. [Concomitant]
     Active Substance: PREDNISONE
     Indication: MYELOFIBROSIS
     Route: 065

REACTIONS (5)
  - Multi-organ failure [Fatal]
  - Respiratory failure [Unknown]
  - Pancytopenia [Unknown]
  - Pulmonary tuberculosis [Fatal]
  - Pseudomonas infection [Unknown]
